FAERS Safety Report 15709939 (Version 1)
Quarter: 2018Q4

REPORT INFORMATION
  Report Type: Spontaneous
  Country: US (occurrence: US)
  Receive Date: 20181211
  Receipt Date: 20181211
  Transmission Date: 20190205
  Serious: No
  Sender: FDA-Public Use
  Company Number: US-US WORLDMEDS, LLC-USW201809-001399

PATIENT
  Sex: Male

DRUGS (4)
  1. TRAMADOL. [Concomitant]
     Active Substance: TRAMADOL
  2. LUCEMYRA [Suspect]
     Active Substance: LOFEXIDINE
     Dates: start: 201809
  3. LUCEMYRA [Suspect]
     Active Substance: LOFEXIDINE
  4. LUCEMYRA [Suspect]
     Active Substance: LOFEXIDINE

REACTIONS (2)
  - Dizziness [Recovered/Resolved]
  - Hypotension [Recovered/Resolved]
